FAERS Safety Report 4645090-6 (Version None)
Quarter: 2005Q2

REPORT INFORMATION
  Report Type: 
  Country: None (occurrence: None)
  Receive Date: 20050422
  Receipt Date: 20050411
  Transmission Date: 20051028
  Serious: Yes (Hospitalization)
  Sender: FDA-Public Use
  Company Number: HQWYE087303FEB05

PATIENT
  Age: 25 Year
  Sex: Female
  Weight: 86.26 kg

DRUGS (6)
  1. PROTONIX [Suspect]
     Indication: GASTROOESOPHAGEAL REFLUX DISEASE
     Dosage: 40 MG 1X PER 1 DAY, ORAL
     Route: 048
     Dates: start: 20050119, end: 20050224
  2. PROTONIX [Suspect]
     Indication: NAUSEA
     Dosage: 40 MG 1X PER 1 DAY, ORAL
     Route: 048
     Dates: start: 20050119, end: 20050224
  3. UNSPECIFIED VITAMINS (UNSPECIFIED VITAMINS) [Concomitant]
  4. ALBUTEROL [Concomitant]
  5. BUTOCONAZOLE (BUTOCONAZOLE) [Concomitant]
  6. TYLENOL W/ CODEINE NO. 3 [Concomitant]

REACTIONS (5)
  - CAESAREAN SECTION [None]
  - CANDIDIASIS [None]
  - CELLULITIS [None]
  - DRUG EXPOSURE DURING PREGNANCY [None]
  - WOUND DEHISCENCE [None]
